FAERS Safety Report 5240696-8 (Version None)
Quarter: 2007Q1

REPORT INFORMATION
  Report Type: 
  Country: None (occurrence: None)
  Receive Date: 20061208
  Receipt Date: 20051010
  Transmission Date: 20070707
  Serious: Yes (Other)
  Sender: FDA-Public Use
  Company Number: 2005UW15148

PATIENT
  Age: 57 Year
  Sex: Female
  Weight: 63.502 kg

DRUGS (6)
  1. CRESTOR [Suspect]
     Dosage: 10 MG QD PO
     Route: 048
  2. HYZAAR [Concomitant]
  3. UNITHROID [Concomitant]
  4. AMERGE [Concomitant]
  5. ZANTAC [Concomitant]
  6. LIBRAX [Concomitant]

REACTIONS (3)
  - HAEMATOCRIT DECREASED [None]
  - HAEMOGLOBIN DECREASED [None]
  - LYMPHOCYTE COUNT DECREASED [None]
